FAERS Safety Report 7165579-8 (Version None)
Quarter: 2010Q4

REPORT INFORMATION
  Report Type: 
  Country: None (occurrence: None)
  Receive Date: 20101215
  Receipt Date: 20091229
  Transmission Date: 20110411
  Serious: No
  Sender: FDA-Public Use
  Company Number: US-AMGEN-KDL382870

PATIENT

DRUGS (12)
  1. ENBREL [Suspect]
     Indication: PRODUCT USED FOR UNKNOWN INDICATION
     Dosage: 50 MG, QWK
     Route: 058
  2. INSULIN LISPRO [Concomitant]
     Dosage: 100 ML, UNK
  3. FENOFIBRATE [Concomitant]
     Dosage: 48 MG, UNK
  4. INSULIN GLARGINE [Concomitant]
     Dosage: 100 ML, UNK
  5. OMEPRAZOLE [Concomitant]
     Dosage: 10 MG, UNK
  6. ERGOCALCIFEROL [Concomitant]
     Dosage: 5000 IU, UNK
  7. ASPIRIN [Concomitant]
     Dosage: 81 MG, UNK
  8. EZETIMIBE [Concomitant]
     Dosage: 10 MG, UNK
  9. ETODOLAC [Concomitant]
     Dosage: 200 MG, UNK
  10. DEXTROPROPOXYPHENE NAPSILATE [Concomitant]
     Dosage: 100 MG, UNK
  11. BISACODYL [Concomitant]
     Dosage: 100 MG, UNK
  12. GLYCERYL TRINITRATE [Concomitant]
     Dosage: .3 MG, UNK

REACTIONS (5)
  - FLUSHING [None]
  - INJECTION SITE PAIN [None]
  - INJECTION SITE REACTION [None]
  - MALAISE [None]
  - PRURITUS [None]
